FAERS Safety Report 8041285-2 (Version None)
Quarter: 2012Q1

REPORT INFORMATION
  Report Type: 
  Country: None (occurrence: None)
  Receive Date: 20120112
  Receipt Date: 20120110
  Transmission Date: 20120608
  Serious: No
  Sender: FDA-Public Use
  Company Number: US-PFIZER INC-2012007773

PATIENT
  Sex: Male

DRUGS (4)
  1. MORPHINE [Concomitant]
     Indication: PAIN
     Dosage: UNK
  2. NEURONTIN [Suspect]
     Dosage: UNK
  3. LYRICA [Suspect]
     Indication: MUSCULOSKELETAL DISCOMFORT
     Dosage: 75 MG, 2X/DAY
     Route: 048
     Dates: start: 20110103
  4. LYRICA [Suspect]
     Indication: NEURALGIA

REACTIONS (1)
  - PAIN [None]
